FAERS Safety Report 23396892 (Version 1)
Quarter: 2024Q1

REPORT INFORMATION
  Report Type: Spontaneous
  Country: US (occurrence: None)
  Receive Date: 20240111
  Receipt Date: 20240111
  Transmission Date: 20240410
  Serious: Yes (Death)
  Sender: FDA-Public Use
  Company Number: None

PATIENT
  Age: 80 Year
  Sex: Male
  Weight: 85.5 kg

DRUGS (12)
  1. RITUXAN [Suspect]
     Active Substance: RITUXIMAB
     Indication: Immune thrombocytopenia
     Dates: start: 20230914, end: 20230928
  2. RITUXAN [Suspect]
     Active Substance: RITUXIMAB
     Indication: Platelet disorder
  3. atorvastatin 40mg [Concomitant]
  4. clobetasol-emollient 5% [Concomitant]
  5. LISINOPRIL [Concomitant]
     Active Substance: LISINOPRIL
  6. potassium citrate 10 meals [Concomitant]
  7. TOLTERODINE [Concomitant]
     Active Substance: TOLTERODINE
  8. ASPIRIN [Concomitant]
     Active Substance: ASPIRIN
  9. biotin 1mg [Concomitant]
  10. ZYRTEC [Concomitant]
     Active Substance: CETIRIZINE HYDROCHLORIDE
  11. magnesium oxide 250mg [Concomitant]
  12. multivitamin 1 tablet daily [Concomitant]

REACTIONS (3)
  - Infusion related reaction [None]
  - Oral pustule [None]
  - Renal failure [None]

NARRATIVE: CASE EVENT DATE: 20230921
